FAERS Safety Report 14390487 (Version 7)
Quarter: 2018Q2

REPORT INFORMATION
  Report Type: Report from Study
  Country: US (occurrence: US)
  Receive Date: 20180116
  Receipt Date: 20180511
  Transmission Date: 20180711
  Serious: Yes (Hospitalization, Other)
  Sender: FDA-Public Use
  Company Number: US-GILEAD-2018-0315861

PATIENT
  Age: 83 Year
  Sex: Female
  Weight: 54.42 kg

DRUGS (4)
  1. BUMEX [Concomitant]
     Active Substance: BUMETANIDE
  2. METAXALONE. [Concomitant]
     Active Substance: METAXALONE
  3. AMBRISENTAN [Suspect]
     Active Substance: AMBRISENTAN
     Indication: ATRIAL SEPTAL DEFECT
  4. AMBRISENTAN [Suspect]
     Active Substance: AMBRISENTAN
     Indication: PULMONARY ARTERIAL HYPERTENSION
     Dosage: 5 MG, QD
     Route: 048
     Dates: start: 20170626

REACTIONS (13)
  - Weight decreased [Unknown]
  - Loss of personal independence in daily activities [Unknown]
  - Weight fluctuation [Not Recovered/Not Resolved]
  - Home care [Not Recovered/Not Resolved]
  - Cardiac failure congestive [Unknown]
  - Ascites [Unknown]
  - Oedema peripheral [Unknown]
  - Gait disturbance [Not Recovered/Not Resolved]
  - Oedema [Unknown]
  - Product use issue [Not Recovered/Not Resolved]
  - Pollakiuria [Not Recovered/Not Resolved]
  - Fluid retention [Unknown]
  - Intentional product use issue [Unknown]

NARRATIVE: CASE EVENT DATE: 201802
